FAERS Safety Report 22000821 (Version 2)
Quarter: 2023Q1

REPORT INFORMATION
  Report Type: Spontaneous
  Country: US (occurrence: US)
  Receive Date: 20230216
  Receipt Date: 20230314
  Transmission Date: 20230418
  Serious: Yes (Other)
  Sender: FDA-Public Use
  Company Number: US-PFIZER INC-202300068349

PATIENT
  Age: 54 Year
  Sex: Male
  Weight: 86.18 kg

DRUGS (3)
  1. PAXLOVID [Suspect]
     Active Substance: NIRMATRELVIR\RITONAVIR
     Indication: COVID-19 treatment
     Dosage: 300MG; 100MG DOSE PACK PER PACKAGE INSTRUCTION
     Route: 048
     Dates: start: 20230210
  2. ASPIRIN [Concomitant]
     Active Substance: ASPIRIN
     Dosage: UNK, 1X/DAY
     Dates: start: 20230212
  3. ROSUVASTATIN [Concomitant]
     Active Substance: ROSUVASTATIN
     Dosage: 20 MG, 1X/DAY
     Dates: start: 2022

REACTIONS (6)
  - Blood pressure increased [Recovered/Resolved]
  - Dysgeusia [Recovered/Resolved]
  - Tremor [Recovered/Resolved]
  - Feeling abnormal [Recovered/Resolved]
  - Tinnitus [Recovering/Resolving]
  - Diarrhoea [Recovered/Resolved]

NARRATIVE: CASE EVENT DATE: 20230210
